FAERS Safety Report 8200690-1 (Version None)
Quarter: 2012Q1

REPORT INFORMATION
  Report Type: 
  Country: None (occurrence: None)
  Receive Date: 20120307
  Receipt Date: 20120302
  Transmission Date: 20120608
  Serious: Yes (Hospitalization, Disabling, Other)
  Sender: FDA-Public Use
  Company Number: GER/UKI/12/0023267

PATIENT
  Age: 63 Year
  Sex: Female

DRUGS (8)
  1. CLOZARIL [Suspect]
     Indication: SCHIZOPHRENIA
     Dosage: 700 MG, ORAL
     Route: 048
     Dates: start: 19970414
  2. CLOZARIL [Suspect]
     Indication: SCHIZOPHRENIA
     Dosage: 700 MG, ORAL
     Route: 048
     Dates: start: 20110801
  3. RABEPRAZOLE SODIUM [Concomitant]
  4. OXYBUTYNIN [Concomitant]
  5. FERRUS SULPHATE (IRON) [Concomitant]
  6. RISPERIDONE [Suspect]
     Indication: SCHIZOPHRENIA
     Dosage: 2 MG, ORAL
     Route: 048
     Dates: start: 20110801
  7. SENNA (SENNA ALEXADRINA) [Concomitant]
  8. ZOPICLONE (ZOPICLONE) [Concomitant]

REACTIONS (2)
  - SCHIZOPHRENIA [None]
  - DISEASE RECURRENCE [None]
